FAERS Safety Report 10975713 (Version 1)
Quarter: 2015Q2

REPORT INFORMATION
  Report Type: Spontaneous
  Country: US (occurrence: US)
  Receive Date: 20150401
  Receipt Date: 20150401
  Transmission Date: 20150821
  Serious: Yes (Hospitalization, Other)
  Sender: FDA-Public Use
  Company Number: US-ABBVIE-15P-163-1368893-00

PATIENT
  Sex: Male

DRUGS (1)
  1. ANDROGEL [Suspect]
     Active Substance: TESTOSTERONE
     Indication: BLOOD TESTOSTERONE DECREASED
     Route: 061
     Dates: start: 20110207, end: 201204

REACTIONS (10)
  - Anhedonia [Unknown]
  - Fear [Unknown]
  - Social problem [Unknown]
  - Anxiety [Unknown]
  - Loss of employment [Unknown]
  - Acute myocardial infarction [Unknown]
  - Impaired work ability [Unknown]
  - Cardiovascular disorder [Unknown]
  - Economic problem [Unknown]
  - Pain [Unknown]
